FAERS Safety Report 9744872 (Version 2)
Quarter: 2013Q4

REPORT INFORMATION
  Report Type: Report from Study
  Country: DE (occurrence: DE)
  Receive Date: 20131211
  Receipt Date: 20131212
  Transmission Date: 20140711
  Serious: Yes (Other)
  Sender: FDA-Public Use
  Company Number: DE-BEH-2013039268

PATIENT
  Age: 42 Year
  Sex: Male
  Weight: 93 kg

DRUGS (3)
  1. PRIVIGEN [Suspect]
     Indication: HUMORAL IMMUNE DEFECT
     Dosage: INFUSION RATE: MIN. 0.47 ML/MIN, MAX. 3.1 ML/MIN.
     Dates: start: 20130205, end: 20130205
  2. ANTIBIOTICS [Concomitant]
  3. VIROSTATIC [Concomitant]

REACTIONS (2)
  - Catheter site infection [Recovered/Resolved]
  - Infection [Recovered/Resolved]
